FAERS Safety Report 24642887 (Version 2)
Quarter: 2024Q4

REPORT INFORMATION
  Report Type: Report from Study
  Country: CA (occurrence: CA)
  Receive Date: 20241120
  Receipt Date: 20241216
  Transmission Date: 20250115
  Serious: Yes (Death, Other)
  Sender: DAIICHI
  Company Number: CA-AstraZeneca-CH-00737787A

PATIENT
  Age: 67 Year
  Sex: Female
  Weight: 67 kg

DRUGS (3)
  1. ENHERTU [Suspect]
     Active Substance: FAM-TRASTUZUMAB DERUXTECAN-NXKI
     Indication: Breast cancer metastatic
     Dosage: 214.4 MG, ONCE EVERY 3 WK
     Route: 042
     Dates: start: 20240822
  2. ENHERTU [Suspect]
     Active Substance: FAM-TRASTUZUMAB DERUXTECAN-NXKI
     Dosage: 214.4 MG, ONCE EVERY 3 WK
     Route: 042
     Dates: start: 20240822
  3. ENHERTU [Suspect]
     Active Substance: FAM-TRASTUZUMAB DERUXTECAN-NXKI
     Dosage: 274 MG, ONCE EVERY 3 WK
     Route: 042
     Dates: start: 20240822

REACTIONS (5)
  - Seizure [Fatal]
  - Malignant neoplasm progression [Fatal]
  - Fatigue [Unknown]
  - Vision blurred [Unknown]
  - Speech latency [Unknown]
